FAERS Safety Report 25679420 (Version 1)
Quarter: 2025Q3

REPORT INFORMATION
  Report Type: Spontaneous
  Country: US (occurrence: US)
  Receive Date: 20250814
  Receipt Date: 20250814
  Transmission Date: 20251020
  Serious: No
  Sender: RANBAXY
  Company Number: US-SUN PHARMACEUTICAL INDUSTRIES LTD-2024R1-454402

PATIENT
  Age: 72 Year
  Sex: Female

DRUGS (3)
  1. TRAMADOL [Suspect]
     Active Substance: TRAMADOL
     Indication: Gout
     Route: 065
     Dates: start: 20240520
  2. TRAMADOL [Suspect]
     Active Substance: TRAMADOL
     Indication: Pain
  3. TRAMADOL [Suspect]
     Active Substance: TRAMADOL
     Indication: Swelling

REACTIONS (2)
  - Abdominal discomfort [Unknown]
  - Therapy cessation [Unknown]

NARRATIVE: CASE EVENT DATE: 20240520
